FAERS Safety Report 9747683 (Version 1)
Quarter: 2013Q4

REPORT INFORMATION
  Report Type: Spontaneous
  Country: FR (occurrence: FR)
  Receive Date: 20131212
  Receipt Date: 20131212
  Transmission Date: 20140711
  Serious: Yes (Life-Threatening)
  Sender: FDA-Public Use
  Company Number: FR-ASTRAZENECA-2013SE90120

PATIENT
  Age: 74 Year
  Sex: Female

DRUGS (1)
  1. INEXIUM [Suspect]
     Route: 048
     Dates: end: 20131103

REACTIONS (2)
  - Aplastic anaemia [Recovered/Resolved]
  - Thrombocytopenia [Recovered/Resolved]
